FAERS Safety Report 6824445-5 (Version None)
Quarter: 2010Q3

REPORT INFORMATION
  Report Type: 
  Country: None (occurrence: None)
  Receive Date: 20100708
  Receipt Date: 20061029
  Transmission Date: 20110219
  Serious: No
  Sender: FDA-Public Use
  Company Number: US-PFIZER INC-2006133084

PATIENT
  Sex: Female
  Weight: 62.6 kg

DRUGS (6)
  1. CHANTIX [Suspect]
     Dates: start: 20061028, end: 20061029
  2. ADDERALL 10 [Concomitant]
  3. CELEXA [Concomitant]
  4. TOPROL-XL [Concomitant]
  5. PROGESTERONE [Concomitant]
  6. VIVELLE [Concomitant]
     Route: 062

REACTIONS (2)
  - FEELING JITTERY [None]
  - NAUSEA [None]
